FAERS Safety Report 7092949-9 (Version None)
Quarter: 2010Q4

REPORT INFORMATION
  Report Type: 
  Country: None (occurrence: None)
  Receive Date: 20101110
  Receipt Date: 20101101
  Transmission Date: 20110411
  Serious: Yes (Disabling, Other)
  Sender: FDA-Public Use
  Company Number: US-PFIZER INC-2010139587

PATIENT
  Sex: Male
  Weight: 63 kg

DRUGS (9)
  1. LIPITOR [Suspect]
     Indication: BLOOD CHOLESTEROL INCREASED
     Dosage: 40 MG, DAILY
     Route: 048
     Dates: start: 20050701, end: 20101029
  2. ATENOLOL [Concomitant]
     Dosage: 25 MG, DAILY
  3. PLAVIX [Concomitant]
     Dosage: 75 MG, DAILY
  4. LISINOPRIL [Concomitant]
     Dosage: UNK
  5. ACETYLSALICYLIC ACID [Concomitant]
     Dosage: 81 MG, DAILY
  6. OXYCODONE [Concomitant]
     Indication: PAIN
     Dosage: 80 MG, 2X/DAY
  7. CARISOPRODOL [Concomitant]
     Indication: PAIN
     Dosage: 350 MG, DAILY
  8. PERCOCET [Concomitant]
     Indication: PAIN
     Dosage: 725 MG, 4X/DAY
  9. ALPRAZOLAM [Concomitant]
     Dosage: 2 MG, 3X/DAY

REACTIONS (2)
  - FEELING ABNORMAL [None]
  - MALAISE [None]
